FAERS Safety Report 18663573 (Version 1)
Quarter: 2020Q4

REPORT INFORMATION
  Report Type: Report from Study
  Country: JP (occurrence: JP)
  Receive Date: 20201224
  Receipt Date: 20201224
  Transmission Date: 20210114
  Serious: Yes (Life-Threatening, Hospitalization, Other)
  Sender: FDA-Public Use
  Company Number: JP-JNJFOC-A-CH2019-196998

PATIENT
  Age: 4 Month
  Sex: Male
  Weight: 5.3 kg

DRUGS (12)
  1. PANVITAN [Concomitant]
     Active Substance: VITAMINS
     Dosage: 0.5 G, QD
     Dates: start: 20190627
  2. NITRIC OXIDE. [Concomitant]
     Active Substance: NITRIC OXIDE
     Dosage: 20 PPM
  3. ALDACTONE A [Concomitant]
     Active Substance: SPIRONOLACTONE
     Dosage: 5 MG, QD
     Dates: start: 20190713
  4. DIGOSIN [Concomitant]
     Active Substance: DIGOXIN
     Dosage: 0.04 MG, QD
     Dates: start: 20190627, end: 20190723
  5. LASIX [Concomitant]
     Active Substance: FUROSEMIDE
     Dosage: 5 MG, QD
     Dates: start: 20190713
  6. RIZABEN [Concomitant]
     Active Substance: TRANILAST
     Indication: ANOMALOUS PULMONARY VENOUS CONNECTION
     Dosage: 20 MG, QD
     Dates: start: 20190703
  7. INCREMIN [Concomitant]
     Indication: IRON DEFICIENCY ANAEMIA
     Dosage: 3 ML, QD
     Dates: start: 20190719
  8. ASPIRIN. [Concomitant]
     Active Substance: ASPIRIN
     Dosage: 20 MG, QD
     Dates: start: 20190705
  9. UPTRAVI [Suspect]
     Active Substance: SELEXIPAG
     Indication: PULMONARY ARTERIAL HYPERTENSION
     Dosage: 0.04 MG, QD
     Route: 048
     Dates: start: 20190719, end: 20190725
  10. TRACLEER [Suspect]
     Active Substance: BOSENTAN
     Indication: PULMONARY ARTERIAL HYPERTENSION
     Dosage: 10 MG, QD
     Route: 048
     Dates: start: 20190717, end: 20190726
  11. ADCIRCA [Concomitant]
     Active Substance: TADALAFIL
     Indication: PULMONARY ARTERIAL HYPERTENSION
     Dosage: 5 MG, QD
     Dates: start: 20190712
  12. DIGOSIN [Concomitant]
     Active Substance: DIGOXIN
     Dosage: 0.05 MG, QD
     Dates: start: 20190724

REACTIONS (13)
  - Staphylococcal bacteraemia [Unknown]
  - Pulmonary congestion [Unknown]
  - Off label use [Unknown]
  - Concomitant disease aggravated [Unknown]
  - Pulmonary vein occlusion [Not Recovered/Not Resolved]
  - Respiratory disorder [Unknown]
  - Device related infection [Unknown]
  - Platelet count decreased [Recovered/Resolved]
  - Therapeutic response decreased [Unknown]
  - Catheter management [Unknown]
  - Vomiting [Recovered/Resolved]
  - Shock symptom [Recovered/Resolved]
  - Syncope [Unknown]

NARRATIVE: CASE EVENT DATE: 20190722
